FAERS Safety Report 11458839 (Version 1)
Quarter: 2015Q3

REPORT INFORMATION
  Report Type: Spontaneous
  Country: US (occurrence: US)
  Receive Date: 20150904
  Receipt Date: 20150904
  Transmission Date: 20151125
  Serious: Yes (Other)
  Sender: FDA-Public Use
  Company Number: US-TAKEDA-2014TUS005456

PATIENT

DRUGS (10)
  1. ACTOS [Suspect]
     Active Substance: PIOGLITAZONE HYDROCHLORIDE
     Indication: TYPE 2 DIABETES MELLITUS
     Dosage: UNK, DURATION: MORE THAN TWELVE MONTHS
     Route: 048
  2. METFORMIN [Concomitant]
     Active Substance: METFORMIN HYDROCHLORIDE
     Dosage: 500-2000MG, UNK
     Dates: start: 1995, end: 2013
  3. APIDRA [Concomitant]
     Active Substance: INSULIN GLULISINE
     Indication: DIABETES MELLITUS
     Dosage: 100 IU, UNK
     Dates: start: 2012
  4. ACTOPLUS MET [Suspect]
     Active Substance: METFORMIN HYDROCHLORIDE\PIOGLITAZONE HYDROCHLORIDE
     Indication: TYPE 2 DIABETES MELLITUS
     Dosage: 15/500 MG, BID
     Route: 048
     Dates: start: 20061128, end: 20070301
  5. LANTUS [Concomitant]
     Active Substance: INSULIN GLARGINE
     Dosage: 15-75 UNITS, UNK
     Dates: start: 2007
  6. GLUCOPHAGE [Concomitant]
     Active Substance: METFORMIN HYDROCHLORIDE
     Dosage: 500-2000MG, UNK
     Dates: start: 1995, end: 2013
  7. DIABETA                            /00145301/ [Concomitant]
     Dosage: 1.5 MG, UNK
     Dates: start: 2007
  8. BYETTA [Concomitant]
     Active Substance: EXENATIDE
     Dosage: 10 ?G, UNK
     Dates: start: 2006, end: 2007
  9. GLYNASE PRESTAB [Concomitant]
     Dosage: UNK
     Dates: start: 2005
  10. VICTOZA [Concomitant]
     Active Substance: LIRAGLUTIDE
     Indication: DIABETES MELLITUS
     Dosage: 12.5 MG, UNK
     Dates: start: 2013

REACTIONS (1)
  - Bladder cancer [Unknown]

NARRATIVE: CASE EVENT DATE: 20090921
